FAERS Safety Report 13737457 (Version 3)
Quarter: 2018Q1

REPORT INFORMATION
  Report Type: Spontaneous
  Country: US (occurrence: US)
  Receive Date: 20170710
  Receipt Date: 20180115
  Transmission Date: 20180508
  Serious: Yes (Hospitalization)
  Sender: FDA-Public Use
  Company Number: US-ASTRAZENECA-2017SE69899

PATIENT
  Age: 21602 Day
  Sex: Female
  Weight: 66 kg

DRUGS (3)
  1. LYNPARZA [Suspect]
     Active Substance: OLAPARIB
     Indication: OVARIAN CANCER
     Route: 048
     Dates: start: 201703
  2. LYNPARZA [Suspect]
     Active Substance: OLAPARIB
     Indication: OVARIAN CANCER
     Route: 048
     Dates: start: 20170413
  3. LYNPARZA [Suspect]
     Active Substance: OLAPARIB
     Indication: OVARIAN CANCER
     Route: 048
     Dates: start: 20170712

REACTIONS (6)
  - Red blood cell nucleated morphology present [Recovered/Resolved]
  - Facial bones fracture [Unknown]
  - Cervical vertebral fracture [Unknown]
  - Fall [Unknown]
  - Fractured coccyx [Unknown]
  - Rib fracture [Unknown]

NARRATIVE: CASE EVENT DATE: 20171223
